FAERS Safety Report 14980444 (Version 2)
Quarter: 2018Q2

REPORT INFORMATION
  Report Type: Report from Study
  Country: US (occurrence: US)
  Receive Date: 20180606
  Receipt Date: 20180614
  Transmission Date: 20180711
  Serious: Yes (Hospitalization)
  Sender: FDA-Public Use
  Company Number: US-BEH-2018091257

PATIENT
  Age: 53 Year
  Sex: Female
  Weight: 71.2 kg

DRUGS (29)
  1. ZEMAIRA [Suspect]
     Active Substance: .ALPHA.1-PROTEINASE INHIBITOR HUMAN
     Dosage: UNK
     Route: 042
  2. NITROGLYCERIN. [Concomitant]
     Active Substance: NITROGLYCERIN
  3. TRAMADOL. [Concomitant]
     Active Substance: TRAMADOL
  4. CLARITIN [Concomitant]
     Active Substance: LORATADINE
  5. MULTIVITAMIN                       /00097801/ [Concomitant]
     Active Substance: VITAMINS
  6. ZEMAIRA [Suspect]
     Active Substance: .ALPHA.1-PROTEINASE INHIBITOR HUMAN
     Indication: ALPHA-1 ANTI-TRYPSIN DEFICIENCY
     Dosage: 45 MG/KG, QW
     Route: 042
     Dates: start: 20070427
  7. PREDNISONE. [Concomitant]
     Active Substance: PREDNISONE
  8. LMX                                /00033401/ [Concomitant]
  9. VENTOLIN [Concomitant]
     Active Substance: ALBUTEROL SULFATE
  10. NORMAL SALINE [Concomitant]
     Active Substance: SODIUM CHLORIDE
  11. EPINEPHRINE. [Concomitant]
     Active Substance: EPINEPHRINE
  12. SYMBICORT [Concomitant]
     Active Substance: BUDESONIDE\FORMOTEROL FUMARATE DIHYDRATE
  13. INSULIN GLARGINE [Concomitant]
     Active Substance: INSULIN GLARGINE
  14. FLUCONAZOLE. [Concomitant]
     Active Substance: FLUCONAZOLE
  15. SODIUM CHLORIDE. [Concomitant]
     Active Substance: SODIUM CHLORIDE
  16. VICKS DAYQUIL [Concomitant]
     Active Substance: DEXTROMETHORPHAN HYDROBROMIDE\GUAIFENESIN
  17. ESTRADIOL. [Concomitant]
     Active Substance: ESTRADIOL
  18. ZOFRAN [Concomitant]
     Active Substance: ONDANSETRON HYDROCHLORIDE
  19. ASPIRIN. [Concomitant]
     Active Substance: ASPIRIN
  20. HUMALOG [Concomitant]
     Active Substance: INSULIN LISPRO
  21. ADVIL (MEFENAMIC ACID) [Concomitant]
     Active Substance: MEFENAMIC ACID
  22. ATIVAN [Concomitant]
     Active Substance: LORAZEPAM
  23. ZEMAIRA [Suspect]
     Active Substance: .ALPHA.1-PROTEINASE INHIBITOR HUMAN
     Dosage: UNK
     Route: 042
     Dates: start: 201805
  24. DIPHENHYDRAMINE. [Concomitant]
     Active Substance: DIPHENHYDRAMINE
  25. GLUCAGON. [Concomitant]
     Active Substance: GLUCAGON
  26. LEVOTHROID [Concomitant]
     Active Substance: LEVOTHYROXINE SODIUM
  27. XOPENEX [Concomitant]
     Active Substance: LEVALBUTEROL HYDROCHLORIDE
  28. CRESTOR [Concomitant]
     Active Substance: ROSUVASTATIN CALCIUM
  29. IMITREX [Concomitant]
     Active Substance: SUMATRIPTAN SUCCINATE

REACTIONS (5)
  - Chest pain [Recovered/Resolved]
  - Pruritus [Recovered/Resolved]
  - Arteriospasm coronary [Recovered/Resolved]
  - Pain in jaw [Recovered/Resolved]
  - Erythema [Recovered/Resolved]

NARRATIVE: CASE EVENT DATE: 201805
